FAERS Safety Report 6747435-X (Version None)
Quarter: 2010Q2

REPORT INFORMATION
  Report Type: 
  Country: None (occurrence: None)
  Receive Date: 20100528
  Receipt Date: 20100420
  Transmission Date: 20101027
  Serious: Yes (Hospitalization, Other)
  Sender: FDA-Public Use
  Company Number: US-BAXTER-2010BH004254

PATIENT
  Age: 41 Year
  Sex: Male
  Weight: 73 kg

DRUGS (11)
  1. HEPARIN SODIUM INJECTION [Suspect]
     Indication: THROMBOSIS PROPHYLAXIS
     Route: 065
     Dates: start: 20060101
  2. HEPARIN SODIUM INJECTION [Suspect]
     Route: 065
     Dates: start: 20070902
  3. HEPARIN SODIUM INJECTION [Suspect]
     Route: 065
     Dates: start: 20070915
  4. HEPARIN SODIUM INJECTION [Suspect]
     Route: 065
     Dates: start: 20090714
  5. AMLODIPINE BESYLATE [Concomitant]
     Indication: BLOOD PRESSURE
     Route: 065
  6. CAPTOPRIL [Concomitant]
     Indication: BLOOD PRESSURE
     Route: 065
  7. ATENOLOL [Concomitant]
     Indication: BLOOD PRESSURE
     Route: 065
  8. MINOXIDIL [Concomitant]
     Indication: DRUG USE FOR UNKNOWN INDICATION
     Route: 065
  9. WARFARIN SODIUM [Concomitant]
     Indication: DRUG USE FOR UNKNOWN INDICATION
     Route: 065
  10. RENAGEL [Concomitant]
     Indication: DRUG USE FOR UNKNOWN INDICATION
     Route: 065
  11. PHOSLO [Concomitant]
     Indication: DRUG USE FOR UNKNOWN INDICATION
     Route: 048

REACTIONS (24)
  - ARTERIOVENOUS FISTULA SITE HAEMORRHAGE [None]
  - ARTHRALGIA [None]
  - CHEST PAIN [None]
  - CHILLS [None]
  - COUGH [None]
  - DECREASED APPETITE [None]
  - DEVICE RELATED SEPSIS [None]
  - DIARRHOEA [None]
  - DYSPNOEA [None]
  - EPISTAXIS [None]
  - FALL [None]
  - FLANK PAIN [None]
  - HEADACHE [None]
  - HYPERKALAEMIA [None]
  - HYPERTENSION [None]
  - LOBAR PNEUMONIA [None]
  - NAUSEA [None]
  - PAIN [None]
  - PNEUMONIA [None]
  - PYREXIA [None]
  - TENDON RUPTURE [None]
  - TREATMENT NONCOMPLIANCE [None]
  - VOMITING [None]
  - WOUND DEHISCENCE [None]
